FAERS Safety Report 9376341 (Version 1)
Quarter: 2013Q3

REPORT INFORMATION
  Report Type: Spontaneous
  Country: DE (occurrence: DE)
  Receive Date: 20130701
  Receipt Date: 20130701
  Transmission Date: 20140515
  Serious: Yes (Other)
  Sender: FDA-Public Use
  Company Number: DE-JNJFOC-20130613439

PATIENT
  Sex: 0

DRUGS (13)
  1. ABCIXIMAB [Suspect]
     Indication: PERCUTANEOUS CORONARY INTERVENTION
     Route: 040
  2. ABCIXIMAB [Suspect]
     Indication: PERCUTANEOUS CORONARY INTERVENTION
     Dosage: 12 HOUR ADJUSTED INTRAVENOUS INFUSION
     Route: 040
  3. ABCIXIMAB [Suspect]
     Indication: MYOCARDIAL INFARCTION
     Dosage: 12 HOUR ADJUSTED INTRAVENOUS INFUSION
     Route: 040
  4. ABCIXIMAB [Suspect]
     Indication: MYOCARDIAL INFARCTION
     Route: 040
  5. ABCIXIMAB [Suspect]
     Indication: PERCUTANEOUS CORONARY INTERVENTION
     Route: 022
  6. ABCIXIMAB [Suspect]
     Indication: MYOCARDIAL INFARCTION
     Route: 022
  7. BETA BLOCKERS, NOS [Concomitant]
     Route: 065
  8. ACE INHIBITORS [Concomitant]
     Route: 065
  9. ASPIRIN [Concomitant]
     Route: 065
  10. CLOPIDOGREL [Concomitant]
     Route: 065
  11. PRASUGREL [Concomitant]
     Route: 065
  12. STATINS [Concomitant]
     Route: 065
  13. ALDOSTERONE ANTAGONISTS [Concomitant]
     Route: 065

REACTIONS (7)
  - Cardiac disorder [Unknown]
  - Myocardial haemorrhage [Unknown]
  - Vascular occlusion [Unknown]
  - Infarction [Unknown]
  - Left ventricular dysfunction [Unknown]
  - Incorrect route of drug administration [Unknown]
  - Cardiac failure congestive [Unknown]
